FAERS Safety Report 5041917-7 (Version None)
Quarter: 2006Q2

REPORT INFORMATION
  Report Type: 
  Country: None (occurrence: None)
  Receive Date: 20060627
  Receipt Date: 20060619
  Transmission Date: 20061013
  Serious: Yes (Hospitalization)
  Sender: FDA-Public Use
  Company Number: FLX20060005

PATIENT
  Age: 53 Year
  Sex: Male

DRUGS (2)
  1. FLUOXETINE [Suspect]
     Dosage: PO
     Route: 048
     Dates: end: 20040101
  2. TRAMADOL HCL [Suspect]
     Indication: PSYCHOTIC DISORDER
     Dosage: PO
     Route: 048
     Dates: end: 20040101

REACTIONS (9)
  - ABDOMINAL DISCOMFORT [None]
  - C-REACTIVE PROTEIN INCREASED [None]
  - CONFUSIONAL STATE [None]
  - HALLUCINATION, VISUAL [None]
  - INFECTION [None]
  - OEDEMA [None]
  - PETECHIAE [None]
  - SEROTONIN SYNDROME [None]
  - TACHYCARDIA [None]
